FAERS Safety Report 19251505 (Version 4)
Quarter: 2021Q2

REPORT INFORMATION
  Report Type: Report from Study
  Country: US (occurrence: US)
  Receive Date: 20210512
  Receipt Date: 20210616
  Transmission Date: 20210717
  Serious: Yes (Other)
  Sender: FDA-Public Use
  Company Number: US-JAZZ-2021-US-007963

PATIENT
  Age: 29 Year
  Sex: Female

DRUGS (3)
  1. XYWAV [Suspect]
     Active Substance: CALCIUM OXYBATE\MAGNESIUM OXYBATE\POTASSIUM OXYBATE\SODIUM OXYBATE
     Indication: NARCOLEPSY
     Dosage: 4.5 GRAM, BID
     Route: 048
     Dates: start: 202101, end: 202105
  2. AMBIEN [Suspect]
     Active Substance: ZOLPIDEM TARTRATE
     Indication: PRODUCT USED FOR UNKNOWN INDICATION
  3. ROBAXIN [Concomitant]
     Active Substance: METHOCARBAMOL
     Indication: BACK PAIN

REACTIONS (22)
  - Anal incontinence [Not Recovered/Not Resolved]
  - Urinary tract infection [Recovering/Resolving]
  - Fall [Recovered/Resolved]
  - Drooling [Unknown]
  - Concussion [Unknown]
  - Blood calcium increased [Unknown]
  - Nausea [Unknown]
  - Neck injury [Unknown]
  - Eye injury [Unknown]
  - Seizure [Unknown]
  - Choking [Unknown]
  - Urinary incontinence [Unknown]
  - Pyrexia [Recovering/Resolving]
  - Lip injury [Unknown]
  - Blood pressure increased [Unknown]
  - Eating disorder [Unknown]
  - Anxiety [Unknown]
  - Vomiting [Not Recovered/Not Resolved]
  - Surgery [Unknown]
  - Vertigo [Recovering/Resolving]
  - Abnormal dreams [Unknown]
  - Head injury [Unknown]

NARRATIVE: CASE EVENT DATE: 2021
